FAERS Safety Report 17939633 (Version 3)
Quarter: 2024Q1

REPORT INFORMATION
  Report Type: Spontaneous
  Country: US (occurrence: US)
  Receive Date: 20200625
  Receipt Date: 20240101
  Transmission Date: 20240410
  Serious: Yes (Hospitalization, Other)
  Sender: FDA-Public Use
  Company Number: US-AUROBINDO-AUR-APL-2020-030605

PATIENT
  Sex: Male

DRUGS (7)
  1. AZITHROMYCIN [Suspect]
     Active Substance: AZITHROMYCIN
     Indication: Babesiosis
     Dosage: UNK
     Route: 064
  2. AZITHROMYCIN [Suspect]
     Active Substance: AZITHROMYCIN
     Dosage: 10 MILLIGRAM/KILOGRAM, ONCE A DAY
     Route: 065
  3. AZITHROMYCIN [Suspect]
     Active Substance: AZITHROMYCIN
     Dosage: 5 MILLIGRAM/KILOGRAM, ONCE A DAY
     Route: 065
  4. CLINDAMYCIN [Suspect]
     Active Substance: CLINDAMYCIN
     Indication: Product used for unknown indication
     Dosage: UNK
     Route: 064
  5. QUININE SULFATE [Suspect]
     Active Substance: QUININE SULFATE
     Indication: Product used for unknown indication
     Dosage: UNK
     Route: 064
  6. ATOVAQUONE [Suspect]
     Active Substance: ATOVAQUONE
     Indication: Babesiosis
     Dosage: UNK
     Route: 064
  7. ATOVAQUONE [Suspect]
     Active Substance: ATOVAQUONE
     Dosage: 40 MILLIGRAM/KILOGRAM, ONCE A DAY (DIVIDED EVERY 12 H)
     Route: 065

REACTIONS (8)
  - Acute myeloid leukaemia [Unknown]
  - Skin mass [Recovered/Resolved]
  - Thrombocytosis [Unknown]
  - Decreased appetite [Unknown]
  - Pallor [Unknown]
  - Irritability [Unknown]
  - Contusion [Unknown]
  - Foetal exposure during pregnancy [Unknown]
